FAERS Safety Report 5878578-0 (Version None)
Quarter: 2008Q3

REPORT INFORMATION
  Report Type: 
  Country: None (occurrence: None)
  Receive Date: 20080909
  Receipt Date: 20080904
  Transmission Date: 20090109
  Serious: Yes (Hospitalization)
  Sender: FDA-Public Use
  Company Number: GXKR2008DE07710

PATIENT
  Age: 10 Year
  Sex: Female
  Weight: 56.6 kg

DRUGS (1)
  1. AMOXIHEXAL (NGX) (AMOXICILLIN TRIHYDRATE) POWDER FOR ORAL SUSPENSION [Suspect]
     Indication: TONSILLITIS
     Dosage: 750 MG, ORAL
     Dates: start: 20080812

REACTIONS (5)
  - BLOOD IMMUNOGLOBULIN E INCREASED [None]
  - CONFUSIONAL STATE [None]
  - CONVULSION [None]
  - DISORIENTATION [None]
  - SOMNOLENCE [None]
